FAERS Safety Report 25486706 (Version 1)
Quarter: 2025Q2

REPORT INFORMATION
  Report Type: Spontaneous
  Country: US (occurrence: US)
  Receive Date: 20250627
  Receipt Date: 20250627
  Transmission Date: 20250717
  Serious: Yes (Other)
  Sender: EMCURE PHARMACEUTICALS LTD
  Company Number: US-AVET LIFESCIENCES LTD-2025-AVET-000202

PATIENT
  Age: 32 Year
  Sex: Male

DRUGS (16)
  1. SERTRALINE HYDROCHLORIDE [Interacting]
     Active Substance: SERTRALINE HYDROCHLORIDE
     Indication: Anxiety
     Dosage: 25 MILLIGRAM, 1 DOSE PER 1D
     Route: 065
  2. SERTRALINE HYDROCHLORIDE [Interacting]
     Active Substance: SERTRALINE HYDROCHLORIDE
     Dosage: INCREASED EVERY OTHER MONTH TO A DOSE OF 200 MG/DAY
     Route: 065
  3. SERTRALINE HYDROCHLORIDE [Interacting]
     Active Substance: SERTRALINE HYDROCHLORIDE
     Dosage: DECREASED PRECIPITOUSLY TO 100 MG/DAY
     Route: 065
  4. RISPERIDONE [Interacting]
     Active Substance: RISPERIDONE
     Indication: Product used for unknown indication
     Dosage: 0.5 MILLIGRAM, 2 DOSE PER 1D
     Route: 065
  5. RISPERIDONE [Interacting]
     Active Substance: RISPERIDONE
     Route: 065
  6. RISPERIDONE [Interacting]
     Active Substance: RISPERIDONE
     Dosage: 1 MILLIGRAM, 2 DOSE PER 1D
     Route: 065
  7. RISPERIDONE [Interacting]
     Active Substance: RISPERIDONE
     Dosage: 0.25 MILLIGRAM, 1 DOSE PER 1D
     Route: 065
  8. CLONIDINE [Interacting]
     Active Substance: CLONIDINE
     Indication: Anxiety
     Route: 065
  9. CLONAZEPAM [Interacting]
     Active Substance: CLONAZEPAM
     Indication: Anxiety
     Route: 065
  10. CLONAZEPAM [Interacting]
     Active Substance: CLONAZEPAM
     Dosage: 0.5 MILLIGRAM, 2 DOSE PER 1D
     Route: 065
  11. MODAFINIL [Interacting]
     Active Substance: MODAFINIL
     Indication: Somnolence
     Route: 065
  12. VALPROIC ACID [Interacting]
     Active Substance: VALPROIC ACID
     Indication: Aggression
     Dosage: 625 MILLIGRAM, 2 DOSE PER 1D
     Route: 065
  13. VALPROIC ACID [Interacting]
     Active Substance: VALPROIC ACID
     Indication: Inappropriate affect
  14. LITHIUM [Concomitant]
     Active Substance: LITHIUM
     Indication: Aggression
     Dosage: LITHIUM ER 750 MILLIGRAM, 1 DOSE PER 1D
     Route: 065
  15. LITHIUM [Concomitant]
     Active Substance: LITHIUM
     Indication: Inappropriate affect
     Dosage: 600 MILLIGRAM, 1 DOSE PER 1D
     Route: 065
  16. LITHIUM [Concomitant]
     Active Substance: LITHIUM
     Dosage: 500 MILLIGRAM, 2 DOSE PER 1D
     Route: 065

REACTIONS (4)
  - Behaviour disorder [Recovering/Resolving]
  - Mood altered [Recovering/Resolving]
  - Extrapyramidal disorder [Unknown]
  - Drug interaction [Unknown]
